APPROVED DRUG PRODUCT: FAMOTIDINE PRESERVATIVE FREE IN PLASTIC CONTAINER
Active Ingredient: FAMOTIDINE
Strength: 0.4MG/ML
Dosage Form/Route: INJECTABLE;INJECTION
Application: A075729 | Product #001
Applicant: ABBVIE INC
Approved: Dec 17, 2001 | RLD: No | RS: No | Type: DISCN